FAERS Safety Report 7987107-7 (Version None)
Quarter: 2011Q4

REPORT INFORMATION
  Report Type: 
  Country: None (occurrence: None)
  Receive Date: 20111216
  Receipt Date: 20110317
  Transmission Date: 20120403
  Serious: No
  Sender: FDA-Public Use
  Company Number: US-BRISTOL-MYERS SQUIBB COMPANY-15614969

PATIENT
  Age: 38 Year
  Sex: Female
  Weight: 82 kg

DRUGS (12)
  1. LITHIUM [Concomitant]
  2. VALIUM [Concomitant]
  3. PIROXICAM [Concomitant]
  4. VITAMIN TAB [Concomitant]
  5. PERCOCET [Concomitant]
  6. DEPAKOTE [Concomitant]
  7. BACLOFEN [Concomitant]
  8. ABILIFY [Suspect]
     Indication: BIPOLAR DISORDER
     Dosage: DOSE INCREASED FROM 2MG TO 5MG THEM 30MG
     Dates: start: 20090101
  9. HYDROCODONE BITARTRATE [Concomitant]
  10. TRAZODONE HCL [Concomitant]
  11. NEURONTIN [Concomitant]
  12. TRIAMTERENE AND HYDROCHLOROTHIAZIDE [Concomitant]

REACTIONS (2)
  - VISION BLURRED [None]
  - CONFUSIONAL STATE [None]
